FAERS Safety Report 9641700 (Version 1)
Quarter: 2013Q4

REPORT INFORMATION
  Report Type: Other
  Country: ZA (occurrence: ZA)
  Receive Date: 20131023
  Receipt Date: 20131023
  Transmission Date: 20140711
  Serious: Yes (Other)
  Sender: FDA-Public Use
  Company Number: ZA-BRISTOL-MYERS SQUIBB COMPANY-19622133

PATIENT
  Age: 50 Year
  Sex: Male

DRUGS (5)
  1. EFAVIRENZ TABS [Suspect]
     Indication: HIV INFECTION
     Route: 065
  2. AMPHOTERICIN B [Suspect]
     Route: 042
  3. LAMIVUDINE [Concomitant]
  4. TENOFOVIR [Concomitant]
  5. FLUCONAZOLE [Concomitant]
     Route: 048

REACTIONS (2)
  - Drug ineffective [Unknown]
  - Injection site phlebitis [Unknown]
